FAERS Safety Report 6184138-7 (Version None)
Quarter: 2009Q2

REPORT INFORMATION
  Report Type: 
  Country: None (occurrence: None)
  Receive Date: 20090508
  Receipt Date: 20090428
  Transmission Date: 20091009
  Serious: Yes (Hospitalization)
  Sender: FDA-Public Use
  Company Number: US-JNJFOC-20090407018

PATIENT
  Sex: Female

DRUGS (4)
  1. DOXIL [Suspect]
     Indication: MULTIPLE MYELOMA
     Route: 042
  2. BORTEZOMIB [Suspect]
     Indication: MULTIPLE MYELOMA
     Route: 065
  3. ACYCLOVIR SODIUM [Concomitant]
     Route: 065
  4. PROCHLORPERAZINE [Concomitant]
     Indication: NAUSEA
     Route: 065

REACTIONS (4)
  - CHILLS [None]
  - CYANOSIS [None]
  - PLATELET COUNT DECREASED [None]
  - SEPSIS [None]
